FAERS Safety Report 16150452 (Version 16)
Quarter: 2020Q3

REPORT INFORMATION
  Report Type: Spontaneous
  Country: US (occurrence: US)
  Receive Date: 20190402
  Receipt Date: 20200717
  Transmission Date: 20201102
  Serious: Yes (Hospitalization)
  Sender: FDA-Public Use
  Company Number: US-ACTELION-A-NJ2019-188355

PATIENT
  Sex: Female
  Weight: 50.79 kg

DRUGS (7)
  1. REMODULIN [Suspect]
     Active Substance: TREPROSTINIL
     Indication: PRODUCT USED FOR UNKNOWN INDICATION
     Route: 065
  2. ADEMPAS [Suspect]
     Active Substance: RIOCIGUAT
     Indication: PRODUCT USED FOR UNKNOWN INDICATION
     Dosage: 2.5 MG
     Route: 065
  3. ADCIRCA [Concomitant]
     Active Substance: TADALAFIL
  4. OPSUMIT [Suspect]
     Active Substance: MACITENTAN
     Indication: PULMONARY HYPERTENSION
     Dosage: 10 MG, QD
     Route: 048
  5. OPSUMIT [Suspect]
     Active Substance: MACITENTAN
     Dosage: 10 MG, QD
     Route: 048
  6. ADEMPAS [Suspect]
     Active Substance: RIOCIGUAT
     Dosage: 2 MG
     Route: 065
  7. WARFARIN [Concomitant]
     Active Substance: WARFARIN

REACTIONS (21)
  - Device difficult to use [Unknown]
  - Catheter site pain [Unknown]
  - Nausea [Unknown]
  - Vomiting [Unknown]
  - Headache [Unknown]
  - Hypotension [Unknown]
  - Diarrhoea [Recovering/Resolving]
  - Contusion [Recovered/Resolved]
  - Catheter site discolouration [Unknown]
  - Catheter site haemorrhage [Unknown]
  - Dizziness [Unknown]
  - Hospitalisation [Unknown]
  - Device dislocation [Unknown]
  - Pulse absent [Unknown]
  - Device related infection [Unknown]
  - Syncope [Unknown]
  - Skin laceration [Unknown]
  - Catheter placement [Unknown]
  - Catheter site infection [Unknown]
  - Fatigue [Unknown]
  - Catheter site swelling [Unknown]
